FAERS Safety Report 4743118-6 (Version None)
Quarter: 2005Q3

REPORT INFORMATION
  Report Type: 
  Country: None (occurrence: None)
  Receive Date: 20050811
  Receipt Date: 20050511
  Transmission Date: 20060218
  Serious: Yes (Hospitalization)
  Sender: FDA-Public Use
  Company Number: US-MERCK-0505USA01659

PATIENT
  Age: 56 Year
  Sex: Male
  Weight: 130 kg

DRUGS (2)
  1. VIOXX [Suspect]
     Indication: OSTEOARTHRITIS
     Route: 048
     Dates: start: 20010101, end: 20040901
  2. VIOXX [Suspect]
     Route: 048
     Dates: start: 20010101, end: 20040901

REACTIONS (9)
  - ADVERSE EVENT [None]
  - ANGINA PECTORIS [None]
  - CORONARY ARTERY DISEASE [None]
  - OVERDOSE [None]
  - PANIC DISORDER [None]
  - POLYTRAUMATISM [None]
  - SLEEP DISORDER [None]
  - UMBILICAL HERNIA [None]
  - WOUND COMPLICATION [None]
